FAERS Safety Report 13620789 (Version 2)
Quarter: 2017Q2

REPORT INFORMATION
  Report Type: Spontaneous
  Country: AR (occurrence: AR)
  Receive Date: 20170607
  Receipt Date: 20170607
  Transmission Date: 20170830
  Serious: Yes (Hospitalization)
  Sender: FDA-Public Use
  Company Number: PHHY2017AR072317

PATIENT
  Age: 82 Year
  Sex: Male

DRUGS (3)
  1. EXELON PATCH [Suspect]
     Active Substance: RIVASTIGMINE
     Dosage: 13.3 MG, UNK, PATCH 15 (CM2)
     Route: 062
  2. EXELON PATCH [Suspect]
     Active Substance: RIVASTIGMINE
     Dosage: 13.3 MG, QD PATCH 15 (CM2)
     Route: 062
  3. EXELON PATCH [Suspect]
     Active Substance: RIVASTIGMINE
     Indication: DEMENTIA
     Dosage: 9.5 MG, QD PATCH 10 (CM2)
     Route: 062

REACTIONS (5)
  - Intestinal obstruction [Recovering/Resolving]
  - Malaise [Not Recovered/Not Resolved]
  - Aggression [Not Recovered/Not Resolved]
  - Cognitive disorder [Unknown]
  - Splenic rupture [Recovering/Resolving]

NARRATIVE: CASE EVENT DATE: 201703
